FAERS Safety Report 14850502 (Version 1)
Quarter: 2018Q2

REPORT INFORMATION
  Report Type: Spontaneous
  Country: DE (occurrence: DE)
  Receive Date: 20180505
  Receipt Date: 20180505
  Transmission Date: 20180711
  Serious: Yes (Life-Threatening, Hospitalization)
  Sender: FDA-Public Use
  Company Number: DE-CONCORDIA PHARMACEUTICALS INC.-E2B_00011570

PATIENT
  Age: 34 Year
  Sex: Female

DRUGS (10)
  1. BETAMETHASONE. [Concomitant]
     Active Substance: BETAMETHASONE
     Indication: PRODUCT USED FOR UNKNOWN INDICATION
     Route: 061
     Dates: start: 2004
  2. MYCOPHENOLATE MOFETILE [Concomitant]
     Indication: MESANGIOPROLIFERATIVE GLOMERULONEPHRITIS
     Route: 065
     Dates: start: 2004
  3. CEFTRIAXONE. [Concomitant]
     Active Substance: CEFTRIAXONE
     Indication: PYREXIA
     Route: 042
     Dates: start: 2004
  4. PREDNISOLONE. [Suspect]
     Active Substance: PREDNISOLONE
     Indication: MESANGIOPROLIFERATIVE GLOMERULONEPHRITIS
     Dosage: TAPERING DOSES
     Route: 065
     Dates: start: 2004
  5. PREDNISOLONE. [Suspect]
     Active Substance: PREDNISOLONE
     Dates: start: 2004
  6. PREDNISOLONE. [Suspect]
     Active Substance: PREDNISOLONE
     Dosage: 3 PREDNISOLONE PULSES OF 100 MG WERE GIVEN ON 3 CONSECUTIVE DAYS
     Dates: start: 2004
  7. CIPROFLOXACIN. [Concomitant]
     Active Substance: CIPROFLOXACIN
     Indication: PYREXIA
     Route: 042
     Dates: start: 2004
  8. PREDNISOLONE. [Suspect]
     Active Substance: PREDNISOLONE
     Dosage: TAPERED DOSE
  9. AZATHIOPRINE. [Concomitant]
     Active Substance: AZATHIOPRINE
     Indication: MESANGIOPROLIFERATIVE GLOMERULONEPHRITIS
     Route: 065
  10. ENDOXAN LYOPHILISAT [Suspect]
     Active Substance: CYCLOPHOSPHAMIDE
     Indication: MESANGIOPROLIFERATIVE GLOMERULONEPHRITIS
     Route: 065
     Dates: start: 2004

REACTIONS (1)
  - Sepsis [Recovering/Resolving]

NARRATIVE: CASE EVENT DATE: 2004
